FAERS Safety Report 14938913 (Version 1)
Quarter: 2018Q2

REPORT INFORMATION
  Report Type: Spontaneous
  Country: DE (occurrence: DE)
  Receive Date: 20180525
  Receipt Date: 20180525
  Transmission Date: 20180711
  Serious: Yes (Other)
  Sender: FDA-Public Use
  Company Number: DE-ACTELION-A-CH2018-172491

PATIENT
  Age: 20 Year
  Sex: Female

DRUGS (5)
  1. XARELTO [Concomitant]
     Active Substance: RIVAROXABAN
     Dosage: 15 MG, UNK
     Dates: start: 201803
  2. EPLERENONA [Concomitant]
     Active Substance: EPLERENONE
     Dosage: UNK
     Dates: start: 201803
  3. SILDENAFIL. [Concomitant]
     Active Substance: SILDENAFIL
     Dosage: 30 MG, TID
     Dates: start: 201803
  4. OPSUMIT [Suspect]
     Active Substance: MACITENTAN
     Indication: PULMONARY ARTERIAL HYPERTENSION
     Dosage: UNK
     Route: 048
     Dates: start: 201801
  5. SILDENAFIL. [Concomitant]
     Active Substance: SILDENAFIL
     Dosage: 20 MG, TID
     Dates: start: 201801

REACTIONS (2)
  - Respiratory therapy [Unknown]
  - Pulmonary haemorrhage [Unknown]

NARRATIVE: CASE EVENT DATE: 201805
